FAERS Safety Report 9696734 (Version 1)
Quarter: 2013Q4

REPORT INFORMATION
  Report Type: Spontaneous
  Country: US (occurrence: US)
  Receive Date: 20131119
  Receipt Date: 20131119
  Transmission Date: 20140711
  Serious: No
  Sender: FDA-Public Use
  Company Number: US-GILEAD-2007-0014497

PATIENT
  Age: 59 Year
  Sex: Female
  Weight: 86.18 kg

DRUGS (7)
  1. LETAIRIS [Suspect]
     Indication: PULMONARY ARTERIAL HYPERTENSION
     Route: 048
     Dates: start: 20071101
  2. POTASSIUM CHLORIDE [Concomitant]
     Indication: HYPOKALAEMIA
     Route: 048
  3. CALCIUM [Concomitant]
     Indication: SUPPLEMENTATION THERAPY
     Route: 048
  4. PEDIATRIC IRON CHEWS [Concomitant]
     Indication: ANAEMIA
     Route: 048
  5. ASPIRIN EC [Concomitant]
     Indication: ANTICOAGULANT THERAPY
     Route: 048
  6. MULTIVITAMINS [Concomitant]
     Indication: SUPPLEMENTATION THERAPY
     Route: 048
  7. MAGTAB [Concomitant]
     Indication: SUPPLEMENTATION THERAPY
     Route: 048

REACTIONS (2)
  - Oedema peripheral [Recovered/Resolved]
  - Nasal congestion [Not Recovered/Not Resolved]
